FAERS Safety Report 21599980 (Version 1)
Quarter: 2022Q4

REPORT INFORMATION
  Report Type: Report from Study
  Country: US (occurrence: US)
  Receive Date: 20221116
  Receipt Date: 20221116
  Transmission Date: 20230113
  Serious: Yes (Other)
  Sender: FDA-Public Use
  Company Number: US-ABBVIE-4197704

PATIENT
  Sex: Male

DRUGS (1)
  1. CREON [Suspect]
     Active Substance: PANCRELIPASE AMYLASE\PANCRELIPASE LIPASE\PANCRELIPASE PROTEASE
     Indication: Product used for unknown indication
     Route: 048

REACTIONS (9)
  - Pancreatic failure [Unknown]
  - Pancreaticoduodenectomy [Unknown]
  - Adenocarcinoma pancreas [Unknown]
  - Chemotherapy [Unknown]
  - Diarrhoea [Unknown]
  - Weight decreased [Unknown]
  - Malabsorption [Unknown]
  - Impaired quality of life [Unknown]
  - Radiotherapy [Unknown]
